FAERS Safety Report 16252081 (Version 2)
Quarter: 2019Q2

REPORT INFORMATION
  Report Type: Report from Study
  Country: US (occurrence: US)
  Receive Date: 20190429
  Receipt Date: 20190626
  Transmission Date: 20190711
  Serious: Yes (Other)
  Sender: FDA-Public Use
  Company Number: US-PFIZER INC-2019034358

PATIENT
  Age: 58 Year
  Sex: Female

DRUGS (1)
  1. XELJANZ [Suspect]
     Active Substance: TOFACITINIB CITRATE
     Indication: COLITIS ULCERATIVE
     Dosage: 10 MG, 2X/DAY
     Route: 048
     Dates: start: 20181220

REACTIONS (9)
  - Depressed mood [Recovered/Resolved]
  - Energy increased [Recovered/Resolved]
  - Hepatic enzyme increased [Unknown]
  - Pre-existing condition improved [Unknown]
  - Haematochezia [Recovered/Resolved]
  - Abdominal pain [Unknown]
  - Increased appetite [Unknown]
  - Lymphocyte count increased [Unknown]
  - Therapeutic response unexpected [Unknown]

NARRATIVE: CASE EVENT DATE: 201812
